FAERS Safety Report 16360266 (Version 1)
Quarter: 2019Q2

REPORT INFORMATION
  Report Type: Report from Study
  Country: TH (occurrence: TH)
  Receive Date: 20190528
  Receipt Date: 20190528
  Transmission Date: 20190711
  Serious: Yes (Death, Other)
  Sender: FDA-Public Use
  Company Number: TH-TAKEDA-2019TUS011680

PATIENT
  Age: 66 Year
  Sex: Male

DRUGS (1)
  1. BORTEZOMIB. [Suspect]
     Active Substance: BORTEZOMIB
     Indication: PLASMA CELL MYELOMA
     Dosage: 2 MILLIGRAM, QD
     Route: 065
     Dates: start: 20190218

REACTIONS (3)
  - Haemorrhage [Unknown]
  - Plasma cell myeloma [Fatal]
  - Lung infection [Recovering/Resolving]

NARRATIVE: CASE EVENT DATE: 20190222
